FAERS Safety Report 9004851 (Version 2)
Quarter: 2013Q1

REPORT INFORMATION
  Report Type: Spontaneous
  Country: US (occurrence: None)
  Receive Date: 20121226
  Receipt Date: 20130314
  Transmission Date: 20140127
  Serious: Yes (Other)
  Sender: FDA-Public Use
  Company Number: JPI-P-027613

PATIENT
  Age: 46 Year
  Sex: Male
  Weight: 86.18 kg

DRUGS (2)
  1. XYREM [Suspect]
     Indication: NARCOLEPSY
     Dosage: (1.25 GM, 2 IN 1 D)
     Route: 048
     Dates: start: 20121030, end: 2012
  2. OXYCODONE AND ACETAMINOPHEN [Concomitant]

REACTIONS (23)
  - Pollakiuria [None]
  - Poor quality sleep [None]
  - Blood pressure increased [None]
  - Suicidal ideation [None]
  - Muscle fatigue [None]
  - Haematochezia [None]
  - Anxiety [None]
  - Tachyphrenia [None]
  - Palpitations [None]
  - Night sweats [None]
  - Arthralgia [None]
  - Vision blurred [None]
  - Intentional drug misuse [None]
  - Insomnia [None]
  - Confusional state [None]
  - Disorientation [None]
  - Asthenia [None]
  - Gait disturbance [None]
  - Tremor [None]
  - Nausea [None]
  - Thirst [None]
  - Skin odour abnormal [None]
  - Drug ineffective [None]
